FAERS Safety Report 20081402 (Version 2)
Quarter: 2021Q4

REPORT INFORMATION
  Report Type: Spontaneous
  Country: VN (occurrence: VN)
  Receive Date: 20211117
  Receipt Date: 20211117
  Transmission Date: 20220303
  Serious: Yes (Death, Other)
  Sender: FDA-Public Use
  Company Number: VN-009507513-2111VNM003155

PATIENT
  Sex: Male

DRUGS (1)
  1. KEYTRUDA [Suspect]
     Active Substance: PEMBROLIZUMAB
     Dosage: DOSE: 1
     Dates: start: 20201203, end: 20210114

REACTIONS (2)
  - Death [Fatal]
  - Interstitial lung disease [Unknown]
